FAERS Safety Report 8071877-6 (Version None)
Quarter: 2012Q1

REPORT INFORMATION
  Report Type: 
  Country: None (occurrence: None)
  Receive Date: 20120126
  Receipt Date: 20120117
  Transmission Date: 20120608
  Serious: No
  Sender: FDA-Public Use
  Company Number: US-BIOGENIDEC-2011BI047942

PATIENT
  Age: 42 Year
  Sex: Female

DRUGS (1)
  1. AVONEX [Suspect]
     Indication: MULTIPLE SCLEROSIS
     Route: 030
     Dates: start: 20110101

REACTIONS (6)
  - CONTUSION [None]
  - INJECTION SITE MASS [None]
  - RASH PRURITIC [None]
  - INJECTION SITE SWELLING [None]
  - INJECTION SITE HAEMATOMA [None]
  - INJECTION SITE PAIN [None]
